FAERS Safety Report 7406893-8 (Version None)
Quarter: 2011Q2

REPORT INFORMATION
  Report Type: 
  Country: None (occurrence: None)
  Receive Date: 20110406
  Receipt Date: 20110406
  Transmission Date: 20111010
  Serious: Yes (Disabling)
  Sender: FDA-Public Use
  Company Number: None

PATIENT
  Age: 77 Year
  Sex: Female
  Weight: 62.1428 kg

DRUGS (2)
  1. CIPROFLOXACIN [Suspect]
     Indication: DYSURIA
     Dosage: 500MG 2 TIMES/DAY
     Dates: start: 20110302
  2. CIPROFLOXACIN [Suspect]
     Indication: DIARRHOEA
     Dosage: 500MG 2 TIMES/DAY
     Dates: start: 20110302

REACTIONS (12)
  - PHARYNGEAL DISORDER [None]
  - PAIN IN JAW [None]
  - DIZZINESS [None]
  - TREMOR [None]
  - GAIT DISTURBANCE [None]
  - CANDIDIASIS [None]
  - PAIN IN EXTREMITY [None]
  - ARTHRALGIA [None]
  - EYE DISORDER [None]
  - TOOTHACHE [None]
  - PARAESTHESIA [None]
  - HEADACHE [None]
